FAERS Safety Report 8423195 (Version 3)
Quarter: 2012Q4

REPORT INFORMATION
  Report Type: 
  Country: JP (occurrence: JP)
  Receive Date: 20120221
  Receipt Date: 20121101
  Transmission Date: 20130627
  Serious: Yes (Disabling)
  Sender: FDA-Public Use
  Company Number: JP-GE HEALTHCARE MEDICAL DIAGNOSTICS-OSCN-NO-0702S-0076

PATIENT
  Age: 24 Year
  Sex: Male
  Weight: 62 kg

DRUGS (9)
  1. OMNISCAN [Suspect]
     Indication: MALIGNANT NEOPLASM OF SPINAL CORD
     Route: 042
     Dates: start: 20061121, end: 20061121
  2. ALFACALCIDOL (ALFAROL) [Concomitant]
     Indication: RENAL FAILURE CHRONIC
     Route: 048
  3. PREDNISOLONE [Concomitant]
     Indication: RENAL FAILURE CHRONIC
     Route: 048
  4. LISINOPRIL (LONGES) [Concomitant]
     Indication: RENAL FAILURE CHRONIC
     Route: 048
  5. CLONAZEPAM (RIVOTRIL) [Concomitant]
     Indication: EPILEPSY
     Route: 048
  6. WASSER [Concomitant]
     Indication: RENAL FAILURE CHRONIC
     Route: 048
  7. AMLODIPINE BESILATE (AMLODIN) [Concomitant]
     Indication: RENAL FAILURE CHRONIC
     Route: 048
  8. FERROUS SULFATE (FERO-GRADUMET) [Concomitant]
     Indication: RENAL FAILURE CHRONIC
     Dosage: 1 tablet
     Route: 048
  9. FAMOTIDINE (GASTER) [Concomitant]
     Indication: RENAL FAILURE CHRONIC
     Route: 048

REACTIONS (13)
  - Nephrogenic systemic fibrosis [Not Recovered/Not Resolved]
  - Erythema [Not Recovered/Not Resolved]
  - Pruritus [Not Recovered/Not Resolved]
  - Urticaria [Not Recovered/Not Resolved]
  - Scleroderma [Not Recovered/Not Resolved]
  - Joint range of motion decreased [Not Recovered/Not Resolved]
  - Gait disturbance [Not Recovered/Not Resolved]
  - Joint contracture [Not Recovered/Not Resolved]
  - Sclerosing encapsulating peritonitis [Not Recovered/Not Resolved]
  - Skin hypertrophy [Not Recovered/Not Resolved]
  - Scab [Not Recovered/Not Resolved]
  - Skin plaque [Not Recovered/Not Resolved]
  - Skin hyperpigmentation [Not Recovered/Not Resolved]
